FAERS Safety Report 15031978 (Version 2)
Quarter: 2018Q4

REPORT INFORMATION
  Report Type: Report from Study
  Country: US (occurrence: US)
  Receive Date: 20180619
  Receipt Date: 20181031
  Transmission Date: 20190204
  Serious: Yes (Other)
  Sender: FDA-Public Use
  Company Number: US-009507513-1806USA005183

PATIENT
  Age: 62 Year
  Sex: Female

DRUGS (2)
  1. PEMBROLIZUMAB. [Suspect]
     Active Substance: PEMBROLIZUMAB
     Indication: OVARIAN CANCER
     Dosage: 200 MILLIGRAM EVERY 3 WEEKS, REPORTED STRENGTH: 100 MG
     Route: 042
     Dates: start: 201603
  2. ROSUVASTATIN. [Concomitant]
     Active Substance: ROSUVASTATIN
     Indication: BLOOD CHOLESTEROL ABNORMAL
     Dosage: UNK

REACTIONS (7)
  - Anxiety [Not Recovered/Not Resolved]
  - Drug effective for unapproved indication [Unknown]
  - Insomnia [Not Recovered/Not Resolved]
  - Neck pain [Not Recovered/Not Resolved]
  - Off label use [Unknown]
  - Metastases to lymph nodes [Not Recovered/Not Resolved]
  - Musculoskeletal chest pain [Not Recovered/Not Resolved]

NARRATIVE: CASE EVENT DATE: 201603
